FAERS Safety Report 16738134 (Version 2)
Quarter: 2019Q3

REPORT INFORMATION
  Report Type: Spontaneous
  Country: JP (occurrence: JP)
  Receive Date: 20190824
  Receipt Date: 20190916
  Transmission Date: 20191005
  Serious: Yes (Other)
  Sender: FDA-Public Use
  Company Number: PHJP2019JP005406

PATIENT
  Age: 63 Year
  Sex: Male
  Weight: 78 kg

DRUGS (6)
  1. EQUA TAB [Suspect]
     Active Substance: VILDAGLIPTIN
     Indication: TYPE 2 DIABETES MELLITUS
     Dosage: 50 MG, BID
     Route: 048
     Dates: start: 20140301, end: 20190427
  2. AMARYL [Concomitant]
     Active Substance: GLIMEPIRIDE
     Indication: TYPE 2 DIABETES MELLITUS
     Dosage: 0.5 MG, UNK
     Route: 065
     Dates: start: 20140522, end: 20161205
  3. EQUMET [Suspect]
     Active Substance: METFORMIN HYDROCHLORIDE\VILDAGLIPTIN
     Indication: TYPE 2 DIABETES MELLITUS
     Dosage: 1 DF (METFORMIN 250 MG / VILDAGLIPTIN 50 MG), BID
     Route: 048
     Dates: start: 20160125, end: 20190427
  4. METGLUCO [Concomitant]
     Active Substance: METFORMIN HYDROCHLORIDE
     Indication: TYPE 2 DIABETES MELLITUS
     Dosage: 250 MG, BID
     Route: 065
     Dates: start: 20140301
  5. JARDIANCE [Concomitant]
     Active Substance: EMPAGLIFLOZIN
     Indication: TYPE 2 DIABETES MELLITUS
     Dosage: 10 MG, QD
     Route: 065
     Dates: start: 20170408
  6. TRESIBA [Concomitant]
     Active Substance: INSULIN DEGLUDEC
     Indication: TYPE 2 DIABETES MELLITUS
     Dosage: 18 DF, UNK
     Route: 065
     Dates: start: 20150213

REACTIONS (3)
  - Blister [Unknown]
  - Pemphigoid [Recovered/Resolved]
  - Eczema [Unknown]

NARRATIVE: CASE EVENT DATE: 20190427
